FAERS Safety Report 8809850 (Version 3)
Quarter: 2013Q2

REPORT INFORMATION
  Report Type: Spontaneous
  Country: FR (occurrence: FR)
  Receive Date: 20120926
  Receipt Date: 20130403
  Transmission Date: 20140414
  Serious: Yes (Hospitalization)
  Sender: FDA-Public Use
  Company Number: FR-PFIZER INC-2012231904

PATIENT
  Age: 18 Year
  Sex: Female

DRUGS (11)
  1. ARACYTINE [Suspect]
     Indication: T-CELL TYPE ACUTE LEUKAEMIA
     Dosage: 1 DOSE, SINGLE
     Route: 037
     Dates: start: 20120626, end: 20120626
  2. ARACYTINE [Suspect]
     Dosage: 1 DOSE, SINGLE
     Route: 037
     Dates: start: 20120701, end: 20120701
  3. METHOTREXATE [Suspect]
     Indication: T-CELL TYPE ACUTE LEUKAEMIA
     Dosage: 1 DOSE, SINGLE
     Route: 037
     Dates: start: 20120626, end: 20120626
  4. METHOTREXATE [Suspect]
     Dosage: 1 DOSE, SINGLE
     Route: 037
     Dates: start: 20120701, end: 20120701
  5. KIDROLASE [Suspect]
     Indication: T-CELL TYPE ACUTE LEUKAEMIA
     Dosage: 9120 IU, CYCLIC (D-1; D-8; D-10; D-20; D-22; D-24; D-26; D-28)
     Route: 042
     Dates: start: 20120622
  6. ENDOXAN [Suspect]
     Indication: T-CELL TYPE ACUTE LEUKAEMIA
     Dosage: 1140 MG, ONCE EVERY 2 WEEKS
     Route: 042
     Dates: start: 20120622, end: 20120622
  7. ENDOXAN [Suspect]
     Dosage: 1140 MG, SINGLE
     Route: 042
     Dates: start: 20120706, end: 20120706
  8. ONCOVIN [Suspect]
     Indication: T-CELL TYPE ACUTE LEUKAEMIA
     Dosage: 2 MG, WEEKLY (D-1; D-8; D-15; D-22)
     Route: 042
     Dates: start: 20120622, end: 20120713
  9. CERUBIDINE [Suspect]
     Indication: T-CELL TYPE ACUTE LEUKAEMIA
     Dosage: 75 MG, CYCLIC (D-1; D-3)
     Route: 042
     Dates: start: 20120622
  10. CERUBIDINE [Suspect]
     Dosage: 46 MG, CYCLIC (D-15; D-16)
     Route: 042
     Dates: start: 201207, end: 201207
  11. LUTENYL [Suspect]
     Indication: ORAL CONTRACEPTION
     Dosage: 5 MG, 1X/DAY
     Route: 048
     Dates: end: 20120821

REACTIONS (3)
  - Deep vein thrombosis [Recovering/Resolving]
  - Pulmonary embolism [Recovering/Resolving]
  - Cerebral venous thrombosis [Recovering/Resolving]
